FAERS Safety Report 5914154-9 (Version None)
Quarter: 2008Q4

REPORT INFORMATION
  Report Type: 
  Country: None (occurrence: None)
  Receive Date: 20081009
  Receipt Date: 20080925
  Transmission Date: 20090506
  Serious: Yes (Hospitalization, Other)
  Sender: FDA-Public Use
  Company Number: IL-ELI_LILLY_AND_COMPANY-IL200808001180

PATIENT
  Sex: Female
  Weight: 81 kg

DRUGS (5)
  1. BYETTA [Suspect]
     Indication: TYPE 2 DIABETES MELLITUS
     Dosage: 5 UG, 2/D
     Route: 058
     Dates: start: 20071201, end: 20080101
  2. BYETTA [Suspect]
     Dosage: 10 UG, 2/D
     Route: 058
     Dates: start: 20080101, end: 20080501
  3. GLUBEN [Concomitant]
     Indication: DIABETES MELLITUS
     Dosage: 10 MG, DAILY (1/D)
     Route: 048
     Dates: start: 20071201
  4. GLUCOPHAGE [Concomitant]
     Indication: DIABETES MELLITUS
     Dosage: 850 MG, 3/D
     Route: 048
     Dates: start: 19950101
  5. ELTROXIN [Concomitant]
     Indication: HYPOTHYROIDISM
     Dosage: 100 MG, DAILY (1/D)
     Route: 048
     Dates: start: 20000101

REACTIONS (9)
  - ARTHRALGIA [None]
  - C-REACTIVE PROTEIN INCREASED [None]
  - DERMATITIS ALLERGIC [None]
  - DIABETES MELLITUS INADEQUATE CONTROL [None]
  - MYALGIA [None]
  - NORMOCHROMIC NORMOCYTIC ANAEMIA [None]
  - RED BLOOD CELL SEDIMENTATION RATE INCREASED [None]
  - THROMBOCYTHAEMIA [None]
  - WEIGHT DECREASED [None]
